FAERS Safety Report 7557036-1 (Version None)
Quarter: 2011Q2

REPORT INFORMATION
  Report Type: 
  Country: None (occurrence: None)
  Receive Date: 20110620
  Receipt Date: 20110610
  Transmission Date: 20111010
  Serious: Yes (Other)
  Sender: FDA-Public Use
  Company Number: US-US-EMD SERONO, INC.-7065111

PATIENT
  Sex: Male

DRUGS (6)
  1. REBIF [Suspect]
     Indication: PRODUCT USED FOR UNKNOWN INDICATION
     Route: 058
     Dates: end: 20110501
  2. MULTI [Concomitant]
  3. VITAMIN D [Concomitant]
  4. AMPYRA [Concomitant]
  5. PROVIGIL [Concomitant]
  6. BACLOFEN [Concomitant]

REACTIONS (1)
  - CELLULITIS [None]
